FAERS Safety Report 10272021 (Version 1)
Quarter: 2014Q3

REPORT INFORMATION
  Report Type: Report from Study
  Country: BR (occurrence: BR)
  Receive Date: 20140702
  Receipt Date: 20140702
  Transmission Date: 20150326
  Serious: Yes (Other)
  Sender: FDA-Public Use
  Company Number: PHHY2014BR080928

PATIENT
  Sex: Female
  Weight: 70 kg

DRUGS (2)
  1. RITALIN LA [Suspect]
     Active Substance: METHYLPHENIDATE HYDROCHLORIDE
     Indication: OFF LABEL USE
  2. RITALIN LA [Suspect]
     Active Substance: METHYLPHENIDATE HYDROCHLORIDE
     Indication: APATHY
     Dosage: 1 DF (1 CAPSULE), DAILY
     Route: 048
     Dates: start: 201405

REACTIONS (3)
  - Increased bronchial secretion [Unknown]
  - Weight decreased [Unknown]
  - Asphyxia [Unknown]
